FAERS Safety Report 8609349-X (Version None)
Quarter: 2012Q3

REPORT INFORMATION
  Report Type: 
  Country: None (occurrence: None)
  Receive Date: 20120821
  Receipt Date: 20120817
  Transmission Date: 20120928
  Serious: Yes (Death, Hospitalization, Other)
  Sender: FDA-Public Use
  Company Number: PHHY2012MX071893

PATIENT
  Sex: Male
  Weight: 50 kg

DRUGS (1)
  1. STALEVO 100 [Suspect]
     Indication: PARKINSON'S DISEASE
     Dosage: 2 TABLETS (200/37.5/150 MG) DAILY
     Route: 048
     Dates: start: 20070101

REACTIONS (6)
  - PNEUMONIA [None]
  - WEIGHT DECREASED [None]
  - DYSPNOEA [None]
  - FATIGUE [None]
  - NEOPLASM MALIGNANT [None]
  - NECK MASS [None]
